FAERS Safety Report 14414814 (Version 1)
Quarter: 2018Q1

REPORT INFORMATION
  Report Type: Spontaneous
  Country: FR (occurrence: FR)
  Receive Date: 20180120
  Receipt Date: 20180120
  Transmission Date: 20180509
  Serious: Yes (Other)
  Sender: FDA-Public Use
  Company Number: FR-AMGEN-FRASP2018005099

PATIENT
  Sex: Female
  Weight: 45 kg

DRUGS (1)
  1. PROLIA [Suspect]
     Active Substance: DENOSUMAB
     Indication: OSTEOPOROSIS
     Dosage: UNK
     Route: 065

REACTIONS (13)
  - Dysaesthesia [Unknown]
  - Blood immunoglobulin M decreased [Unknown]
  - Bone loss [Unknown]
  - Acne [Unknown]
  - Adenoma benign [Unknown]
  - Pneumonitis [Unknown]
  - Pain in jaw [Unknown]
  - Dental cyst [Unknown]
  - Hordeolum [Unknown]
  - Back pain [Unknown]
  - Renal infarct [Unknown]
  - Tooth disorder [Unknown]
  - Headache [Unknown]

NARRATIVE: CASE EVENT DATE: 2016
